FAERS Safety Report 6608850-8 (Version None)
Quarter: 2010Q1

REPORT INFORMATION
  Report Type: 
  Country: None (occurrence: None)
  Receive Date: 20100301
  Receipt Date: 20100217
  Transmission Date: 20100710
  Serious: Yes (Other)
  Sender: FDA-Public Use
  Company Number: JP-PFIZER INC-2010024767

PATIENT
  Sex: Female

DRUGS (1)
  1. ZOLOFT [Suspect]
     Route: 048
     Dates: end: 20100212

REACTIONS (10)
  - ALOPECIA [None]
  - DECREASED APPETITE [None]
  - FEELING COLD [None]
  - MALAISE [None]
  - MENSTRUATION IRREGULAR [None]
  - MUTISM [None]
  - MYALGIA [None]
  - SLEEP DISORDER [None]
  - WEIGHT DECREASED [None]
  - WITHDRAWAL SYNDROME [None]
